FAERS Safety Report 18143257 (Version 2)
Quarter: 2020Q3

REPORT INFORMATION
  Report Type: Report from Study
  Country: US (occurrence: US)
  Receive Date: 20200812
  Receipt Date: 20200918
  Transmission Date: 20201103
  Serious: No
  Sender: FDA-Public Use
  Company Number: NVSC2020US223216

PATIENT
  Age: 47 Year
  Sex: Female
  Weight: 79.82 kg

DRUGS (1)
  1. ENTRESTO [Suspect]
     Active Substance: SACUBITRIL\VALSARTAN
     Indication: CARDIAC FAILURE
     Dosage: 50 MG (24/26), BID
     Route: 048

REACTIONS (3)
  - Weight increased [Unknown]
  - Hypoacusis [Unknown]
  - Cough [Unknown]

NARRATIVE: CASE EVENT DATE: 20200807
